FAERS Safety Report 9316625 (Version 1)
Quarter: 2013Q1

REPORT INFORMATION
  Report Type: Spontaneous
  Country: US (occurrence: None)
  Receive Date: 20130123
  Receipt Date: 20130123
  Transmission Date: 20140127
  Serious: Yes (Other)
  Sender: FDA-Public Use
  Company Number: DKLU1087199

PATIENT
  Age: 56 Year
  Sex: Male

DRUGS (2)
  1. SABRIL [Suspect]
     Indication: EPILEPSY
     Dosage: AM
     Dates: start: 1997
  2. CARBAMZEPINE (CARBAMAZEPINE) [Concomitant]

REACTIONS (2)
  - Glaucoma [None]
  - Visual field defect [None]
